FAERS Safety Report 5084867-2 (Version None)
Quarter: 2006Q3

REPORT INFORMATION
  Report Type: 
  Country: None (occurrence: None)
  Receive Date: 20060815
  Receipt Date: 20060807
  Transmission Date: 20061208
  Serious: Yes (Death)
  Sender: FDA-Public Use
  Company Number: 2006-01634

PATIENT
  Age: 56 Year
  Sex: Male

DRUGS (1)
  1. VELCADE [Suspect]
     Indication: MULTIPLE MYELOMA
     Dosage: 1.30 MG/M2
     Dates: start: 20050214, end: 20050404

REACTIONS (10)
  - BACK PAIN [None]
  - DISEASE PROGRESSION [None]
  - MASS [None]
  - MENTAL STATUS CHANGES [None]
  - METASTASES TO MENINGES [None]
  - PARAPLEGIA [None]
  - PLASMA CELLS INCREASED [None]
  - REFUSAL OF TREATMENT BY RELATIVE [None]
  - SPINAL DISORDER [None]
  - STUPOR [None]
